FAERS Safety Report 11032634 (Version 3)
Quarter: 2015Q4

REPORT INFORMATION
  Report Type: Spontaneous
  Country: US (occurrence: US)
  Receive Date: 20150415
  Receipt Date: 20151120
  Transmission Date: 20160304
  Serious: No
  Sender: FDA-Public Use
  Company Number: US-009507513-1504USA015000

PATIENT
  Sex: Male

DRUGS (3)
  1. PROPECIA [Suspect]
     Active Substance: FINASTERIDE
     Indication: ALOPECIA
     Dosage: 1 MG, UNKNOWN
     Route: 048
     Dates: start: 200006
  2. FINASTERIDE. [Suspect]
     Active Substance: FINASTERIDE
     Indication: ALOPECIA
     Dosage: 1.25MG (5MG SPLIT INTO 1/4S)
     Route: 048
     Dates: end: 201110
  3. FINASTERIDE. [Suspect]
     Active Substance: FINASTERIDE
     Indication: ALOPECIA

REACTIONS (12)
  - Loss of libido [Unknown]
  - Ejaculation disorder [Unknown]
  - Brain injury [Not Recovered/Not Resolved]
  - Anxiety [Unknown]
  - Hormone level abnormal [Not Recovered/Not Resolved]
  - Endocrine disorder [Not Recovered/Not Resolved]
  - Depression [Unknown]
  - Mental impairment [Unknown]
  - Wrong technique in product usage process [Unknown]
  - Erectile dysfunction [Not Recovered/Not Resolved]
  - Penis injury [Not Recovered/Not Resolved]
  - Sexual dysfunction [Not Recovered/Not Resolved]

NARRATIVE: CASE EVENT DATE: 200009
